FAERS Safety Report 6062585-1 (Version None)
Quarter: 2009Q1

REPORT INFORMATION
  Report Type: 
  Country: None (occurrence: None)
  Receive Date: 20090129
  Receipt Date: 20090119
  Transmission Date: 20090719
  Serious: Yes (Other)
  Sender: FDA-Public Use
  Company Number: GXKR2009CH00946

PATIENT
  Age: 42 Year
  Sex: Male

DRUGS (6)
  1. CARBAMAZEPINE [Suspect]
     Indication: EPILEPSY
     Dosage: 1300 MG, DAILY;
  2. CARBAMAZEPINE [Suspect]
     Indication: PARTIAL SEIZURES
     Dosage: 1300 MG, DAILY;
  3. VALPROIC ACID [Suspect]
     Indication: EPILEPSY
     Dosage: 3350 MG, DAILY
  4. VALPROIC ACID [Suspect]
     Indication: PARTIAL SEIZURES
     Dosage: 3350 MG, DAILY
  5. PHENOBARBITAL TAB [Suspect]
     Indication: EPILEPSY
     Dosage: 100 MG, DAILY
  6. PHENOBARBITAL TAB [Suspect]
     Indication: PARTIAL SEIZURES
     Dosage: 100 MG, DAILY

REACTIONS (2)
  - DISEASE RECURRENCE [None]
  - FIBROMATOSIS [None]
